FAERS Safety Report 17233774 (Version 3)
Quarter: 2020Q1

REPORT INFORMATION
  Report Type: Spontaneous
  Country: US (occurrence: US)
  Receive Date: 20200106
  Receipt Date: 20200130
  Transmission Date: 20200409
  Serious: Yes (Life-Threatening, Hospitalization, Other)
  Sender: FDA-Public Use
  Company Number: US-ADVANZ PHARMA-201912003250

PATIENT

DRUGS (16)
  1. THYMOGLOBULIN [Suspect]
     Active Substance: LAPINE T-LYMPHOCYTE IMMUNE GLOBULIN
     Indication: IMMUNOSUPPRESSANT DRUG THERAPY
     Dosage: 4.5 MG/KG TOTAL CUMULATIVE DOSE TO FIRST REACTION (NUMBER AND UNIT) 4.5 MG/KG
  2. TACROLIMUS. [Suspect]
     Active Substance: TACROLIMUS
     Dosage: INTERMITTENT ELEVATION, REQUIRING DOSE REDUCTION
  3. LEFLUNOMIDE. [Concomitant]
     Active Substance: LEFLUNOMIDE
     Dosage: 20 MG, QD (STARTED AT 2 MONTHS)
  4. TACROLIMUS. [Suspect]
     Active Substance: TACROLIMUS
     Indication: IMMUNOSUPPRESSANT DRUG THERAPY
     Dosage: REDUCED IMMUNOSUPPRESSION
  5. LEFLUNOMIDE. [Concomitant]
     Active Substance: LEFLUNOMIDE
     Dosage: 30 MG, QD
  6. TACROLIMUS. [Suspect]
     Active Substance: TACROLIMUS
     Dosage: UNK
  7. NYSTATIN. [Concomitant]
     Active Substance: NYSTATIN
     Indication: INFECTION PROPHYLAXIS
     Dosage: UNK
  8. SULFAMETHOXAZOLE, TRIMETHOPRIM [Concomitant]
     Active Substance: SULFAMETHOXAZOLE\TRIMETHOPRIM
     Indication: INFECTION PROPHYLAXIS
     Dosage: UNK
  9. PREDNISOLONE. [Suspect]
     Active Substance: PREDNISOLONE
     Indication: IMMUNOSUPPRESSION
     Dosage: UNK REDUCED IMMUNOSUPPRESSION
  10. MYCOPHENOLATE MOFETIL. [Suspect]
     Active Substance: MYCOPHENOLATE MOFETIL
     Indication: IMMUNOSUPPRESSANT DRUG THERAPY
     Dosage: UNK, ON POD 1
  11. VALGANCICLOVIR. [Concomitant]
     Active Substance: VALGANCICLOVIR
     Indication: INFECTION PROPHYLAXIS
     Dosage: UNK
  12. AMLODIPINE [Concomitant]
     Active Substance: AMLODIPINE BESYLATE
     Indication: HYPERTENSION
     Dosage: UNK, AT 1 MONTH POST-RT
  13. MYCOPHENOLATE MOFETIL. [Suspect]
     Active Substance: MYCOPHENOLATE MOFETIL
     Dosage: UNK, RESTARTED
  14. ASPIRIN. [Concomitant]
     Active Substance: ASPIRIN
     Dosage: UNK BABY ASPIRIN
  15. PREDNISOLONE. [Suspect]
     Active Substance: PREDNISOLONE
     Dosage: REDUCED IMMUNOSUPPRESSION
  16. METHYLPREDNISOLONE. [Suspect]
     Active Substance: METHYLPREDNISOLONE
     Indication: IMMUNOSUPPRESSANT DRUG THERAPY
     Dosage: UNK

REACTIONS (14)
  - Hypertension [Unknown]
  - Febrile neutropenia [Unknown]
  - Posterior reversible encephalopathy syndrome [Unknown]
  - Corona virus infection [Unknown]
  - Hypertensive emergency [Recovered/Resolved]
  - BK virus infection [Recovered/Resolved]
  - Respiratory tract infection viral [Unknown]
  - Pulmonary oedema [Recovering/Resolving]
  - Polyomavirus-associated nephropathy [Recovered/Resolved]
  - Renal artery stenosis [Unknown]
  - Parainfluenzae virus infection [Unknown]
  - Urinary tract infection [Unknown]
  - Left ventricular hypertrophy [Unknown]
  - Generalised tonic-clonic seizure [Unknown]
